FAERS Safety Report 12161601 (Version 3)
Quarter: 2018Q4

REPORT INFORMATION
  Report Type: Report from Study
  Country: DE (occurrence: DE)
  Receive Date: 20160309
  Receipt Date: 20181123
  Transmission Date: 20190204
  Serious: Yes (Death, Disabling)
  Sender: FDA-Public Use
  Company Number: DE-ROCHE-1723067

PATIENT
  Age: 83 Year
  Sex: Female

DRUGS (1)
  1. RITUXIMAB. [Suspect]
     Active Substance: RITUXIMAB
     Indication: RHEUMATOID ARTHRITIS
     Dosage: LAST DATE OF DOSE PRIOR TO SAE: 02/JUL/2015?LAST ADMINISTRATION OF 500 MG MABTHERA WAS ON 13/JUL/201
     Route: 042

REACTIONS (3)
  - Renal failure [Fatal]
  - Dementia [Unknown]
  - Dehydration [Fatal]

NARRATIVE: CASE EVENT DATE: 201507
